FAERS Safety Report 8156351-0 (Version None)
Quarter: 2012Q1

REPORT INFORMATION
  Report Type: 
  Country: None (occurrence: None)
  Receive Date: 20120222
  Receipt Date: 20120216
  Transmission Date: 20120608
  Serious: No
  Sender: FDA-Public Use
  Company Number: US-PFIZER INC-2011036605

PATIENT
  Sex: Female
  Weight: 57 kg

DRUGS (4)
  1. GABAPENTIN [Suspect]
     Indication: PAIN
     Dosage: 600 MG, 2X/DAY
     Route: 048
     Dates: start: 20051101
  2. GABAPENTIN [Suspect]
     Indication: POST HERPETIC NEURALGIA
  3. ACETAMINOPHEN [Concomitant]
     Indication: RHEUMATOID ARTHRITIS
     Dosage: 650 MG, 2X/DAY
     Route: 048
  4. GABAPENTIN [Suspect]
     Indication: POST-TRAUMATIC PAIN
     Dosage: 100 MG, 1X/DAY
     Route: 048
     Dates: start: 20051101, end: 20051101

REACTIONS (11)
  - PALPITATIONS [None]
  - SPEECH DISORDER [None]
  - MEMORY IMPAIRMENT [None]
  - BODY HEIGHT DECREASED [None]
  - SOMNOLENCE [None]
  - DIZZINESS [None]
  - COORDINATION ABNORMAL [None]
  - PAIN [None]
  - MUSCLE SPASMS [None]
  - WEIGHT DECREASED [None]
  - FATIGUE [None]
